FAERS Safety Report 20666459 (Version 1)
Quarter: 2022Q2

REPORT INFORMATION
  Report Type: Spontaneous
  Country: US (occurrence: US)
  Receive Date: 20220403
  Receipt Date: 20220403
  Transmission Date: 20220721
  Serious: No
  Sender: FDA-Public Use
  Company Number: US-SA-SAC20220331001622

PATIENT
  Sex: Female

DRUGS (1)
  1. KEVZARA [Suspect]
     Active Substance: SARILUMAB
     Indication: Rheumatoid arthritis
     Dosage: 200 UNK, QOW
     Route: 058
     Dates: start: 202107

REACTIONS (4)
  - Illness [Unknown]
  - Chronic obstructive pulmonary disease [Recovered/Resolved]
  - Sputum discoloured [Recovered/Resolved]
  - Product use issue [Unknown]
